FAERS Safety Report 5592516-X (Version None)
Quarter: 2008Q1

REPORT INFORMATION
  Report Type: 
  Country: None (occurrence: None)
  Receive Date: 20080111
  Receipt Date: 20080102
  Transmission Date: 20080703
  Serious: Yes (Hospitalization, Other)
  Sender: FDA-Public Use
  Company Number: 08H-028-0313662-00

PATIENT
  Age: 45 Year
  Sex: Female

DRUGS (4)
  1. HEPARIN SODIUM INJECTION [Suspect]
     Indication: EMBOLISM
     Dosage: 25000 IU
  2. HEPARIN SODIUM [Suspect]
     Indication: THROMBOSIS PROPHYLAXIS
     Dosage: 5000 IU, EVERY 12 HOURS, SUBCUTANEOUS
     Route: 058
  3. HEPARINISED GAUZES                       (HEPARIN) [Suspect]
     Indication: DRUG USE FOR UNKNOWN INDICATION
     Dosage: EVERY 1-2 HOURS, TOPICAL
     Route: 061
  4. DEXTROSE 5% (GLUCOSE) [Concomitant]

REACTIONS (7)
  - ARTERIAL OCCLUSIVE DISEASE [None]
  - DEEP VEIN THROMBOSIS [None]
  - EMBOLISM [None]
  - HEPARIN-INDUCED THROMBOCYTOPENIA [None]
  - POSTOPERATIVE THROMBOSIS [None]
  - SURGICAL FAILURE [None]
  - VENOUS OCCLUSION [None]
